FAERS Safety Report 25801504 (Version 2)
Quarter: 2025Q3

REPORT INFORMATION
  Report Type: Spontaneous
  Country: EU (occurrence: EU)
  Receive Date: 20250915
  Receipt Date: 20250925
  Transmission Date: 20251021
  Serious: Yes (Other)
  Sender: CIPLA
  Company Number: EU-AFSSAPS-BS2025000695

PATIENT

DRUGS (3)
  1. RIVAROXABAN [Suspect]
     Active Substance: RIVAROXABAN
     Indication: Atrial fibrillation
     Dosage: 20 MILLIGRAM, QD
     Route: 049
     Dates: end: 20250725
  2. HEPARIN SODIUM [Suspect]
     Active Substance: HEPARIN SODIUM
     Indication: Atrial fibrillation
     Dosage: 64000 INTERNATIONAL UNIT, QD (SOLUTION INJECTABLE)
     Route: 042
     Dates: start: 20250726, end: 20250727
  3. CALCIPARINE [Suspect]
     Active Substance: HEPARIN CALCIUM
     Indication: Atrial fibrillation
     Dosage: 60000 INTERNATIONAL UNIT, QD (SOLUTION INJECTABLE)
     Route: 042
     Dates: start: 20250726, end: 20250726

REACTIONS (2)
  - Accidental overdose [Recovered/Resolved]
  - Gastrointestinal haemorrhage [Recovered/Resolved]

NARRATIVE: CASE EVENT DATE: 20250726
